FAERS Safety Report 6875179-2 (Version None)
Quarter: 2010Q3

REPORT INFORMATION
  Report Type: 
  Country: None (occurrence: None)
  Receive Date: 20100727
  Receipt Date: 20100714
  Transmission Date: 20110219
  Serious: Yes (Death)
  Sender: FDA-Public Use
  Company Number: RO-JNJFOC-20100705137

PATIENT
  Sex: Female

DRUGS (2)
  1. REMICADE [Suspect]
     Indication: PSORIASIS
     Dosage: 5 VIALS INTRAVENOUS EVERY 2 MONTHS
     Route: 042
  2. REMICADE [Suspect]
     Dosage: 5 VIALS INTRAVENOUS EVERY 2 MONTHS
     Route: 042

REACTIONS (2)
  - CEREBROVASCULAR ACCIDENT [None]
  - SUDDEN DEATH [None]
